FAERS Safety Report 5693661-0 (Version None)
Quarter: 2008Q2

REPORT INFORMATION
  Report Type: 
  Country: None (occurrence: None)
  Receive Date: 20080403
  Receipt Date: 20080331
  Transmission Date: 20081010
  Serious: Yes (Hospitalization)
  Sender: FDA-Public Use
  Company Number: US-MERCK-0804USA00381

PATIENT
  Age: 10 Year
  Sex: Female

DRUGS (7)
  1. SINGULAIR [Suspect]
     Route: 048
     Dates: start: 20040101
  2. CLARITIN [Concomitant]
     Route: 065
  3. FLOVENT [Concomitant]
     Route: 065
  4. XOPENEX [Concomitant]
     Route: 065
  5. RISPERDAL [Concomitant]
     Route: 065
  6. ZOLOFT [Concomitant]
     Route: 065
  7. NASONEX [Concomitant]
     Route: 065

REACTIONS (2)
  - ABNORMAL BEHAVIOUR [None]
  - HALLUCINATION, AUDITORY [None]
